FAERS Safety Report 18441970 (Version 3)
Quarter: 2021Q2

REPORT INFORMATION
  Report Type: Report from Study
  Country: ES (occurrence: ES)
  Receive Date: 20201029
  Receipt Date: 20210506
  Transmission Date: 20210717
  Serious: Yes (Hospitalization, Other)
  Sender: FDA-Public Use
  Company Number: ES-TAKEDA-ES202006298

PATIENT
  Age: 9 Year
  Sex: Male

DRUGS (21)
  1. IDURSULFASE [Suspect]
     Active Substance: IDURSULFASE
     Dosage: 3 DOSAGE FORM, 1X/WEEK
     Route: 065
     Dates: start: 20140114
  2. CARBAMACEPINA [Concomitant]
     Active Substance: CARBAMAZEPINE
     Indication: PRODUCT USED FOR UNKNOWN INDICATION
     Dosage: 300 MILLIGRAM, 1X/DAY:QD
     Route: 065
  3. IDURSULFASE [Suspect]
     Active Substance: IDURSULFASE
     Dosage: 3 DOSAGE FORM, 1X/WEEK
     Route: 065
     Dates: start: 20140114
  4. IDURSULFASE [Suspect]
     Active Substance: IDURSULFASE
     Dosage: UNK
     Route: 065
     Dates: start: 20200417
  5. KEPPRA [Concomitant]
     Active Substance: LEVETIRACETAM
     Indication: PRODUCT USED FOR UNKNOWN INDICATION
     Dosage: 9 MILLILITER
     Route: 065
  6. IDURSULFASE [Suspect]
     Active Substance: IDURSULFASE
     Indication: MUCOPOLYSACCHARIDOSIS II
     Dosage: 3 DOSAGE FORM, OTHER(EVERY 7 DAYS)
     Route: 065
     Dates: start: 20140114
  7. IDURSULFASE [Suspect]
     Active Substance: IDURSULFASE
     Dosage: 3 DOSAGE FORM, 1X/WEEK
     Route: 065
     Dates: start: 20140114
  8. IDURSULFASE [Suspect]
     Active Substance: IDURSULFASE
     Dosage: 3 DOSAGE FORM, 1X/WEEK
     Route: 065
     Dates: start: 20140114
  9. KEPPRA [Concomitant]
     Active Substance: LEVETIRACETAM
     Dosage: 9.5 MILLILITER, EVERY 2H
     Route: 065
  10. CARBAMACEPINA [Concomitant]
     Active Substance: CARBAMAZEPINE
     Dosage: 200 MILLIGRAM
     Route: 065
  11. CARBAMACEPINA [Concomitant]
     Active Substance: CARBAMAZEPINE
     Dosage: 400 MILLIGRAM
     Route: 065
  12. IDURSULFASE [Suspect]
     Active Substance: IDURSULFASE
     Dosage: UNK
     Route: 065
     Dates: start: 20200409
  13. IDURSULFASE [Suspect]
     Active Substance: IDURSULFASE
     Dosage: 3 DOSAGE FORM, 1X/WEEK
     Route: 065
     Dates: start: 20140114
  14. IDURSULFASE [Suspect]
     Active Substance: IDURSULFASE
     Dosage: 3 DOSAGE FORM (VIALS), 1X/WEEK
     Route: 065
     Dates: start: 20140114
  15. IDURSULFASE [Suspect]
     Active Substance: IDURSULFASE
     Dosage: UNK
     Route: 065
     Dates: start: 20200226
  16. IDURSULFASE [Suspect]
     Active Substance: IDURSULFASE
     Dosage: UNK
     Route: 065
     Dates: start: 20200312
  17. IDURSULFASE [Suspect]
     Active Substance: IDURSULFASE
     Dosage: UNK
     Route: 065
     Dates: start: 20200325
  18. IDURSULFASE [Suspect]
     Active Substance: IDURSULFASE
     Dosage: 3 DOSAGE FORM, OTHER(EVERY 7 DAYS)
     Route: 065
     Dates: start: 20140114
  19. IDURSULFASE [Suspect]
     Active Substance: IDURSULFASE
     Dosage: 3 DOSAGE FORM, 1X/WEEK
     Route: 065
     Dates: start: 20140114
  20. IDURSULFASE [Suspect]
     Active Substance: IDURSULFASE
     Dosage: 2?3 VIALS, 1/WEEK
     Route: 042
     Dates: start: 20170322
  21. STESOLID [Concomitant]
     Active Substance: DIAZEPAM
     Indication: PRODUCT USED FOR UNKNOWN INDICATION
     Dosage: 10 MILLIGRAM, AS REQD
     Route: 065

REACTIONS (10)
  - Pyrexia [Recovered/Resolved]
  - Seizure [Recovered/Resolved]
  - Hydrocephalus [Recovered/Resolved]
  - Productive cough [Recovered/Resolved]
  - Device related infection [Recovered/Resolved]
  - COVID-19 [Recovered/Resolved]
  - Respiratory symptom [Recovered/Resolved]
  - Febrile convulsion [Recovered/Resolved]
  - Ear infection [Recovered/Resolved]
  - Musculoskeletal stiffness [Recovered/Resolved]

NARRATIVE: CASE EVENT DATE: 20200212
